FAERS Safety Report 7763339-8 (Version None)
Quarter: 2011Q3

REPORT INFORMATION
  Report Type: 
  Country: None (occurrence: None)
  Receive Date: 20110920
  Receipt Date: 20110912
  Transmission Date: 20111222
  Serious: Yes (Other)
  Sender: FDA-Public Use
  Company Number: US-ASTRAZENECA-2011SE54525

PATIENT
  Age: 73 Year
  Sex: Female
  Weight: 68 kg

DRUGS (6)
  1. WARFARIN SODIUM [Concomitant]
     Indication: CARDIAC OPERATION
     Route: 048
  2. FASLOMAX [Concomitant]
     Indication: ARTHRITIS
     Dosage: ONCE
     Route: 048
  3. NEXIUM [Suspect]
     Indication: GASTROOESOPHAGEAL REFLUX DISEASE
     Route: 048
     Dates: start: 20040101
  4. FASLOMAX [Concomitant]
     Indication: OSTEOPOROSIS
     Dosage: ONCE
     Route: 048
  5. SYNTHROID [Concomitant]
     Indication: THYROID DISORDER
     Route: 048
  6. CHOLESTORIL [Concomitant]
     Indication: BLOOD CHOLESTEROL INCREASED
     Dosage: AT NIGHT
     Route: 048

REACTIONS (2)
  - OSTEOPOROSIS [None]
  - INCORRECT DRUG ADMINISTRATION DURATION [None]
